FAERS Safety Report 20736693 (Version 1)
Quarter: 2022Q2

REPORT INFORMATION
  Report Type: Spontaneous
  Country: US (occurrence: US)
  Receive Date: 20220421
  Receipt Date: 20220421
  Transmission Date: 20220721
  Serious: No
  Sender: FDA-Public Use
  Company Number: US-Kiniksa Pharmaceuticals Ltd.-2021KPU000610

PATIENT
  Age: 36 Year
  Sex: Female

DRUGS (4)
  1. ARCALYST [Suspect]
     Active Substance: RILONACEPT
     Indication: Product used for unknown indication
     Route: 058
  2. ARCALYST [Suspect]
     Active Substance: RILONACEPT
     Indication: Pericarditis
  3. NAPROXEN SODIUM\PSEUDOEPHEDRINE HYDROCHLORIDE [Concomitant]
     Active Substance: NAPROXEN SODIUM\PSEUDOEPHEDRINE HYDROCHLORIDE
     Indication: Hypersensitivity
  4. DIGOXIN [Concomitant]
     Active Substance: DIGOXIN
     Indication: Product used for unknown indication

REACTIONS (8)
  - Arthralgia [Unknown]
  - Oropharyngeal discomfort [Not Recovered/Not Resolved]
  - Throat irritation [Not Recovered/Not Resolved]
  - Eye pruritus [Not Recovered/Not Resolved]
  - Injection site reaction [Unknown]
  - Injection site mass [Unknown]
  - Injection site inflammation [Unknown]
  - Injection site erythema [Unknown]
